FAERS Safety Report 10077062 (Version 3)
Quarter: 2014Q2

REPORT INFORMATION
  Report Type: Spontaneous
  Country: JP (occurrence: JP)
  Receive Date: 20140414
  Receipt Date: 20140620
  Transmission Date: 20141212
  Serious: Yes (Hospitalization)
  Sender: FDA-Public Use
  Company Number: JP-JNJFOC-20140409207

PATIENT
  Age: 51 Year
  Sex: Male
  Weight: 61 kg

DRUGS (4)
  1. REMICADE [Suspect]
     Indication: CROHN^S DISEASE
     Route: 042
     Dates: start: 20140116
  2. REMICADE [Suspect]
     Indication: CROHN^S DISEASE
     Route: 042
     Dates: start: 20130926
  3. REMICADE [Suspect]
     Indication: CROHN^S DISEASE
     Route: 042
     Dates: start: 20040226
  4. MERCAPTOPURINE [Suspect]
     Indication: PRODUCT USED FOR UNKNOWN INDICATION
     Route: 048

REACTIONS (3)
  - Pulmonary alveolar haemorrhage [Recovering/Resolving]
  - Interstitial lung disease [Recovering/Resolving]
  - Pneumocystis jirovecii pneumonia [Recovering/Resolving]
